FAERS Safety Report 9098930 (Version 2)
Quarter: 2013Q1

REPORT INFORMATION
  Report Type: Report from Study
  Country: US (occurrence: US)
  Receive Date: 20130213
  Receipt Date: 20130313
  Transmission Date: 20140127
  Serious: Yes (Hospitalization, Other)
  Sender: FDA-Public Use
  Company Number: US-JNJFOC-20130200572

PATIENT
  Age: 17 Year
  Sex: Female
  Weight: 61.5 kg

DRUGS (8)
  1. REMICADE [Suspect]
     Indication: CROHN^S DISEASE
     Route: 042
     Dates: start: 20081202
  2. HUMIRA [Concomitant]
     Dates: start: 20090903
  3. MULTIVITAMINS [Concomitant]
  4. LOPERAMIDE [Concomitant]
  5. ANTIBIOTICS FOR IBD [Concomitant]
     Indication: INFLAMMATORY BOWEL DISEASE
  6. CALCIUM CARBONATE [Concomitant]
  7. PROBIOTICS [Concomitant]
  8. FLUCONAZOLE [Concomitant]

REACTIONS (1)
  - Crohn^s disease [Recovered/Resolved]
